FAERS Safety Report 6958747-9 (Version None)
Quarter: 2010Q3

REPORT INFORMATION
  Report Type: 
  Country: None (occurrence: None)
  Receive Date: 20100831
  Receipt Date: 20100823
  Transmission Date: 20110219
  Serious: Yes (Hospitalization, Other)
  Sender: FDA-Public Use
  Company Number: US-TEVA-246153USA

PATIENT
  Sex: Female

DRUGS (2)
  1. OCTREOTIDE ACETATE INJECTIONS [Suspect]
     Indication: HYPERINSULINISM
     Dosage: 20 MCG/KG/DAY
     Route: 058
  2. DIAZOXIDE [Concomitant]
     Indication: HYPERINSULINISM

REACTIONS (1)
  - NECROTISING ENTEROCOLITIS NEONATAL [None]
